FAERS Safety Report 9782931 (Version 1)
Quarter: 2013Q4

REPORT INFORMATION
  Report Type: Spontaneous
  Country: US (occurrence: US)
  Receive Date: 20131226
  Receipt Date: 20131226
  Transmission Date: 20140711
  Serious: No
  Sender: FDA-Public Use
  Company Number: US-ABBVIE-13P-163-1163471-00

PATIENT
  Sex: Male
  Weight: 72.64 kg

DRUGS (4)
  1. LUPRON DEPOT [Suspect]
     Indication: PROSTATE CANCER
     Dosage: AS NEEDED BASED ON PSA LEVELS
     Dates: start: 2007
  2. PRAVASTATIN [Concomitant]
     Indication: BLOOD CHOLESTEROL INCREASED
  3. FLOMAX [Concomitant]
     Indication: POLLAKIURIA
  4. PAIN MEDICATION [Concomitant]
     Indication: ARTHRALGIA

REACTIONS (2)
  - Inappropriate affect [Not Recovered/Not Resolved]
  - Irritability [Not Recovered/Not Resolved]
